FAERS Safety Report 11347319 (Version 1)
Quarter: 2015Q3

REPORT INFORMATION
  Report Type: Spontaneous
  Country: FR (occurrence: FR)
  Receive Date: 20150806
  Receipt Date: 20150806
  Transmission Date: 20151125
  Serious: Yes (Hospitalization)
  Sender: FDA-Public Use
  Company Number: FR-PFIZER INC-2015256017

PATIENT
  Age: 68 Year
  Sex: Female

DRUGS (18)
  1. FASTURTEC [Concomitant]
     Active Substance: RASBURICASE
     Dosage: UNK
     Route: 042
     Dates: start: 20150316
  2. MABTHERA [Suspect]
     Active Substance: RITUXIMAB
     Dosage: SECOND 28-DAY-COURSES
     Route: 042
     Dates: start: 20150414, end: 2015
  3. EFFEXOR LP [Suspect]
     Active Substance: VENLAFAXINE HYDROCHLORIDE
     Dosage: 75 MG, 1X/DAY
     Route: 048
  4. MABTHERA [Suspect]
     Active Substance: RITUXIMAB
     Indication: SPLENIC MARGINAL ZONE LYMPHOMA
     Dosage: FIRST 28-DAY-COURSES
     Route: 042
     Dates: start: 20150316, end: 2015
  5. ZELITREX [Concomitant]
     Active Substance: VALACYCLOVIR HYDROCHLORIDE
     Indication: ANTIVIRAL PROPHYLAXIS
     Dosage: 500 MG, 2X/DAY
     Route: 048
     Dates: start: 200903
  6. LEVACT [Suspect]
     Active Substance: BENDAMUSTINE HYDROCHLORIDE
     Indication: SPLENIC MARGINAL ZONE LYMPHOMA
     Dosage: 70 MG/M2, CYCLIC (FIRST 28-DAY-COURSES)
     Route: 042
     Dates: start: 20150316, end: 2015
  7. LEVACT [Suspect]
     Active Substance: BENDAMUSTINE HYDROCHLORIDE
     Dosage: 70 MG/M2, CYCLIC (SECOND 28-DAY-COURSES)
     Route: 042
     Dates: start: 20150414, end: 2015
  8. LOXAPAC [Suspect]
     Active Substance: LOXAPINE SUCCINATE
     Dosage: 30 GTT OF 25 MG/ML, DAILY
     Route: 048
  9. LEPONEX [Suspect]
     Active Substance: CLOZAPINE
     Dosage: 100 MG, 4X/DAY
     Route: 048
     Dates: start: 201201, end: 2015
  10. LEVACT [Suspect]
     Active Substance: BENDAMUSTINE HYDROCHLORIDE
     Dosage: 70 MG/M2, CYCLIC (THIRD 28-DAY-COURSES)
     Route: 042
     Dates: start: 20150513
  11. TRANXENE T-TAB [Concomitant]
     Active Substance: CLORAZEPATE DIPOTASSIUM
     Dosage: 10 MG, 1X/DAY
     Route: 048
  12. MABTHERA [Suspect]
     Active Substance: RITUXIMAB
     Dosage: THIRD 28-DAY-COURSES
     Route: 042
     Dates: start: 20150513
  13. LEVOTHYROX [Concomitant]
     Active Substance: LEVOTHYROXINE
     Dosage: 175 ?G, 1X/DAY
     Route: 048
  14. KARDEGIC [Concomitant]
     Active Substance: ASPIRIN LYSINE
     Dosage: 75 MG, 1X/DAY
     Route: 048
  15. LEXOMIL [Concomitant]
     Active Substance: BROMAZEPAM
     Dosage: 6 MG, AS NEEDED
  16. BACTRIM [Suspect]
     Active Substance: SULFAMETHOXAZOLE\TRIMETHOPRIM
     Indication: OPPORTUNISTIC INFECTION PROPHYLAXIS
     Dosage: 1 DF OF [SULFAMETHOXAZOLE 400 MG]/[TRIMETHOPRIM 80 MG], 3 TIMES PER WEEK
     Route: 048
     Dates: start: 201503
  17. MOPRAL [Suspect]
     Active Substance: OMEPRAZOLE SODIUM
     Dosage: 20 MG, DAILY
     Route: 048
     Dates: start: 201503
  18. ZOLPIDEM [Concomitant]
     Active Substance: ZOLPIDEM\ZOLPIDEM TARTRATE
     Dosage: 10 MG, 1X/DAY
     Route: 048

REACTIONS (2)
  - Neutropenia [Recovered/Resolved]
  - Leukopenia [Recovered/Resolved]

NARRATIVE: CASE EVENT DATE: 20150529
